FAERS Safety Report 12628760 (Version 1)
Quarter: 2016Q3

REPORT INFORMATION
  Report Type: Spontaneous
  Country: FR (occurrence: FR)
  Receive Date: 20160808
  Receipt Date: 20160808
  Transmission Date: 20161109
  Serious: Yes (Hospitalization)
  Sender: FDA-Public Use
  Company Number: FR-ACCORD-042887

PATIENT
  Age: 45 Year
  Sex: Female

DRUGS (6)
  1. PANTOPRAZOLE [Concomitant]
     Active Substance: PANTOPRAZOLE SODIUM
     Dates: end: 20151207
  2. INNOHEP [Concomitant]
     Active Substance: TINZAPARIN SODIUM
     Route: 058
     Dates: start: 201512
  3. LODOZ [Concomitant]
     Active Substance: BISOPROLOL FUMARATE\HYDROCHLOROTHIAZIDE
     Dosage: STRENGTH: 10 MG/ 6.25 MG
     Route: 048
  4. OXALIPLATINE ACCORD [Concomitant]
     Active Substance: OXALIPLATIN
     Dosage: STRENGTH: 5 MG/ML
     Dates: start: 20151021, end: 20160222
  5. CALCIUM LEVOFOLINATE [Suspect]
     Active Substance: LEVOLEUCOVORIN CALCIUM
     Indication: COLORECTAL ADENOCARCINOMA
     Route: 042
     Dates: start: 20151021
  6. FLUOROURACIL ACCORD [Suspect]
     Active Substance: FLUOROURACIL
     Indication: COLORECTAL ADENOCARCINOMA
     Dosage: STRENGTH: 50 MG/ML
     Route: 042
     Dates: start: 20151021

REACTIONS (1)
  - Hypertriglyceridaemia [Recovering/Resolving]

NARRATIVE: CASE EVENT DATE: 20160415
